FAERS Safety Report 5018723-2 (Version None)
Quarter: 2006Q2

REPORT INFORMATION
  Report Type: 
  Country: None (occurrence: None)
  Receive Date: 20060606
  Receipt Date: 20060224
  Transmission Date: 20061013
  Serious: Yes (Hospitalization)
  Sender: FDA-Public Use
  Company Number: DE-ROCHE-437878

PATIENT
  Age: 80 Year
  Sex: Female
  Weight: 60 kg

DRUGS (2)
  1. ANEXATE [Suspect]
     Indication: REVERSAL OF SEDATION
     Route: 065
  2. RIVOTRIL [Suspect]
     Indication: EPILEPSY
     Dosage: ROUTE PROVIDED AS PERFUSION
     Route: 050

REACTIONS (1)
  - DEPRESSED LEVEL OF CONSCIOUSNESS [None]
